FAERS Safety Report 16365318 (Version 1)
Quarter: 2019Q2

REPORT INFORMATION
  Report Type: Spontaneous
  Country: US (occurrence: US)
  Receive Date: 20190529
  Receipt Date: 20190529
  Transmission Date: 20190711
  Serious: Yes (Other)
  Sender: FDA-Public Use
  Company Number: US-AUROBINDO-AUR-APL-2019-029431

PATIENT

DRUGS (1)
  1. OXALIPLATIN. [Suspect]
     Active Substance: OXALIPLATIN
     Indication: RECTAL CANCER
     Dosage: UNK UNK, CYCLICAL
     Route: 065

REACTIONS (4)
  - Loss of personal independence in daily activities [Unknown]
  - Neuropathy peripheral [Unknown]
  - Self esteem decreased [Unknown]
  - Emotional distress [Unknown]
